FAERS Safety Report 10202793 (Version 1)
Quarter: 2014Q2

REPORT INFORMATION
  Report Type: Spontaneous
  Country: ES (occurrence: ES)
  Receive Date: 20140528
  Receipt Date: 20140528
  Transmission Date: 20141212
  Serious: Yes (Death, Other)
  Sender: FDA-Public Use
  Company Number: PHHY2014ES061117

PATIENT
  Age: 68 Year
  Sex: Male

DRUGS (2)
  1. DOCETAXEL [Suspect]
     Indication: NON-SMALL CELL LUNG CANCER METASTATIC
     Route: 042
  2. CISPLATIN [Concomitant]
     Indication: SMALL CELL LUNG CANCER METASTATIC

REACTIONS (6)
  - Non-small cell lung cancer metastatic [Fatal]
  - Eccrine squamous syringometaplasia [Recovering/Resolving]
  - Dermatitis [Recovering/Resolving]
  - Skin plaque [Recovering/Resolving]
  - Erythema [Recovering/Resolving]
  - Infusion site extravasation [Unknown]
